FAERS Safety Report 7032864-X (Version None)
Quarter: 2010Q4

REPORT INFORMATION
  Report Type: 
  Country: None (occurrence: None)
  Receive Date: 20101007
  Receipt Date: 20100930
  Transmission Date: 20110411
  Serious: Yes (Death)
  Sender: FDA-Public Use
  Company Number: BR-ROCHE-730453

PATIENT
  Sex: Female
  Weight: 59 kg

DRUGS (8)
  1. TOCILIZUMAB [Suspect]
     Indication: PRODUCT USED FOR UNKNOWN INDICATION
     Dosage: FORM: INFUSION
     Route: 065
     Dates: start: 20090101, end: 20090101
  2. RITUXIMAB [Suspect]
     Indication: PRODUCT USED FOR UNKNOWN INDICATION
     Dosage: FORM: INFUSION
     Route: 065
     Dates: start: 20090101, end: 20090101
  3. METICORTEN [Concomitant]
  4. CORTISONE [Concomitant]
  5. ALIVIUM [Concomitant]
     Dosage: DRUG REPORTED ALIVIUM 600
  6. OMEPRAZOLE [Concomitant]
  7. CALCIUM [Concomitant]
  8. ARADOIS [Concomitant]

REACTIONS (5)
  - BLOOD PRESSURE ABNORMAL [None]
  - DEATH [None]
  - HYPERSENSITIVITY [None]
  - PYREXIA [None]
  - THERAPEUTIC RESPONSE DECREASED [None]
